FAERS Safety Report 5065158-2 (Version None)
Quarter: 2006Q3

REPORT INFORMATION
  Report Type: 
  Country: None (occurrence: None)
  Receive Date: 20060725
  Receipt Date: 20060710
  Transmission Date: 20061208
  Serious: Yes (Hospitalization)
  Sender: FDA-Public Use
  Company Number: 2006VX000796

PATIENT
  Age: 76 Year
  Sex: Female

DRUGS (4)
  1. PERMAX [Suspect]
     Indication: PARKINSON'S DISEASE
     Dosage: SEE IMAGE
     Route: 048
  2. LEVODOPA [Concomitant]
  3. DOPS [Concomitant]
  4. TOLEDOMIN [Concomitant]

REACTIONS (8)
  - ANXIETY [None]
  - CARDIOMYOPATHY [None]
  - CHEST PAIN [None]
  - DEPRESSED MOOD [None]
  - DEPRESSION [None]
  - DRUG INTERACTION [None]
  - GAIT DISTURBANCE [None]
  - INSOMNIA [None]
